FAERS Safety Report 5358711-X (Version None)
Quarter: 2007Q2

REPORT INFORMATION
  Report Type: 
  Country: None (occurrence: None)
  Receive Date: 20070615
  Receipt Date: 20070605
  Transmission Date: 20071010
  Serious: Yes (Hospitalization)
  Sender: FDA-Public Use
  Company Number: IT-AMGEN-UK225251

PATIENT
  Sex: Female

DRUGS (16)
  1. PANITUMUMAB [Suspect]
     Indication: COLORECTAL CANCER
     Route: 042
     Dates: start: 20070321, end: 20070504
  2. FLUOROURACIL [Concomitant]
  3. OXALIPLATIN [Concomitant]
  4. LEUCOVORIN CALCIUM [Concomitant]
  5. ALPRAZOLAM [Concomitant]
     Route: 048
  6. VENLAFAXINE HCL [Concomitant]
     Route: 048
  7. ONDANSETRON [Concomitant]
     Dates: start: 20070321
  8. DEXAMETASON [Concomitant]
     Route: 042
     Dates: start: 20070321
  9. RANITIDINE [Concomitant]
     Route: 042
     Dates: start: 20070321
  10. DEXAMETASON [Concomitant]
     Route: 042
     Dates: start: 20070321
  11. HYDROCORTISON [Concomitant]
     Route: 042
     Dates: start: 20070322, end: 20070322
  12. GRANISETRON [Concomitant]
     Route: 042
     Dates: start: 20070404
  13. ZOVIRAX [Concomitant]
     Route: 048
     Dates: start: 20070514, end: 20070524
  14. CLEXANE [Concomitant]
     Route: 058
     Dates: start: 20070514
  15. LANSOX [Concomitant]
     Route: 048
     Dates: start: 20070514
  16. BROMAZEPAM [Concomitant]
     Route: 048
     Dates: start: 20070321, end: 20070323

REACTIONS (1)
  - PULMONARY EMBOLISM [None]
